FAERS Safety Report 6293783-X (Version None)
Quarter: 2009Q3

REPORT INFORMATION
  Report Type: 
  Country: None (occurrence: None)
  Receive Date: 20090803
  Receipt Date: 20090724
  Transmission Date: 20100115
  Serious: Yes (Other)
  Sender: FDA-Public Use
  Company Number: IT-ASTRAZENECA-2009SE05737

PATIENT
  Age: 14047 Day
  Sex: Male

DRUGS (5)
  1. SEROQUEL [Suspect]
     Indication: SCHIZOAFFECTIVE DISORDER
     Route: 048
     Dates: start: 20090605, end: 20090619
  2. SEROQUEL [Suspect]
     Route: 048
     Dates: start: 20090626
  3. DEPAKOTE [Concomitant]
     Route: 048
  4. TRANQUIRIT [Concomitant]
     Route: 048
  5. TOPAMAX [Concomitant]
     Route: 048

REACTIONS (2)
  - BURNING SENSATION [None]
  - OEDEMA PERIPHERAL [None]
